FAERS Safety Report 5664463-6 (Version None)
Quarter: 2008Q1

REPORT INFORMATION
  Report Type: 
  Country: None (occurrence: None)
  Receive Date: 20080314
  Receipt Date: 20080227
  Transmission Date: 20080703
  Serious: Yes (Other)
  Sender: FDA-Public Use
  Company Number: A0698002A

PATIENT
  Age: 58 Year
  Sex: Female
  Weight: 147.7 kg

DRUGS (6)
  1. ADVAIR DISKUS 100/50 [Suspect]
     Indication: ASTHMA
     Route: 048
  2. LASIX [Concomitant]
  3. ZESTRIL [Concomitant]
  4. ZESTORETIC [Concomitant]
  5. ZOLOFT [Concomitant]
  6. XANAX [Concomitant]

REACTIONS (4)
  - ASTHMA [None]
  - DRUG ADMINISTRATION ERROR [None]
  - DRUG INEFFECTIVE [None]
  - PHARMACEUTICAL PRODUCT COMPLAINT [None]
